FAERS Safety Report 7715011-8 (Version None)
Quarter: 2011Q3

REPORT INFORMATION
  Report Type: 
  Country: None (occurrence: None)
  Receive Date: 20110829
  Receipt Date: 20110608
  Transmission Date: 20111222
  Serious: No
  Sender: FDA-Public Use
  Company Number: US-ASTRAZENECA-2011SE35202

PATIENT
  Age: 80 Year
  Sex: Male

DRUGS (4)
  1. VIMOVO [Suspect]
     Indication: OSTEOARTHRITIS
     Dosage: 500 MG/20 MG
     Route: 048
     Dates: start: 20110512
  2. NAPROSYN [Concomitant]
  3. HEART MED [Concomitant]
  4. OMEPRAZOLE [Concomitant]

REACTIONS (3)
  - DYSPNOEA [None]
  - RESTLESS LEGS SYNDROME [None]
  - FATIGUE [None]
